FAERS Safety Report 12665483 (Version 2)
Quarter: 2016Q3

REPORT INFORMATION
  Report Type: Report from Study
  Country: US (occurrence: US)
  Receive Date: 20160818
  Receipt Date: 20160901
  Transmission Date: 20161109
  Serious: Yes (Hospitalization)
  Sender: FDA-Public Use
  Company Number: US-ACTELION-A-US2015-129061

PATIENT
  Age: 76 Year
  Sex: Female

DRUGS (6)
  1. ADCIRCA [Concomitant]
     Active Substance: TADALAFIL
  2. OPSUMIT [Suspect]
     Active Substance: MACITENTAN
     Indication: PULMONARY ARTERIAL HYPERTENSION
     Dosage: 10 MG, QD
     Route: 048
     Dates: start: 20150724
  3. COUMADIN [Concomitant]
     Active Substance: WARFARIN SODIUM
  4. RIOCIGUAT [Concomitant]
     Active Substance: RIOCIGUAT
     Dosage: 2 MG, TID
  5. TYVASO [Concomitant]
     Active Substance: TREPROSTINIL
  6. RIOCIGUAT [Concomitant]
     Active Substance: RIOCIGUAT
     Dosage: 0.5 MG, UNK

REACTIONS (18)
  - Transfusion [Unknown]
  - Colonoscopy [Unknown]
  - Contusion [Unknown]
  - Headache [Unknown]
  - Oedema peripheral [Unknown]
  - Bone marrow failure [Unknown]
  - Lung disorder [Unknown]
  - Erythema [Unknown]
  - Haemoglobin decreased [Unknown]
  - Frequent bowel movements [Unknown]
  - Chest pain [Unknown]
  - Eye contusion [Unknown]
  - Abdominal discomfort [Unknown]
  - Chest discomfort [Unknown]
  - Pneumonia [Unknown]
  - Carpal tunnel syndrome [Unknown]
  - Fall [Unknown]
  - Dyspnoea [Unknown]

NARRATIVE: CASE EVENT DATE: 20151214
